FAERS Safety Report 13255586 (Version 1)
Quarter: 2017Q1

REPORT INFORMATION
  Report Type: Spontaneous
  Country: US (occurrence: US)
  Receive Date: 20170221
  Receipt Date: 20170221
  Transmission Date: 20170428
  Serious: No
  Sender: FDA-Public Use
  Company Number: US-MYLANLABS-2017M1001566

PATIENT
  Age: 51 Year
  Sex: Male
  Weight: 95.24 kg

DRUGS (1)
  1. OLMESARTAN MEDOXOMIL TABLETS [Suspect]
     Active Substance: OLMESARTAN MEDOXOMIL
     Indication: BLOOD PRESSURE MANAGEMENT
     Dosage: 40 MG, AM
     Route: 048
     Dates: start: 20161203, end: 20161218

REACTIONS (4)
  - Drug effect decreased [Recovered/Resolved]
  - Palpitations [Recovered/Resolved]
  - Blood pressure increased [None]
  - Product substitution issue [None]

NARRATIVE: CASE EVENT DATE: 201612
